FAERS Safety Report 13064856 (Version 2)
Quarter: 2017Q1

REPORT INFORMATION
  Report Type: Spontaneous
  Country: JP (occurrence: JP)
  Receive Date: 20161227
  Receipt Date: 20170127
  Transmission Date: 20170428
  Serious: Yes (Other)
  Sender: FDA-Public Use
  Company Number: JP-RECORDATI RARE DISEASES-JP-R13005-16-00328

PATIENT
  Age: 20 Day
  Sex: Male

DRUGS (4)
  1. ANTIBACTERIAL AGENTS [Concomitant]
     Indication: SEPTIC SHOCK
     Route: 065
  2. NO [Concomitant]
     Indication: PULMONARY HYPERTENSION
     Route: 055
  3. INDOCIN [Suspect]
     Active Substance: INDOMETHACIN
     Indication: PATENT DUCTUS ARTERIOSUS
     Route: 065
  4. GASTROGRAFIN [Concomitant]
     Active Substance: DIATRIZOATE MEGLUMINE\DIATRIZOATE SODIUM
     Indication: PRODUCT USED FOR UNKNOWN INDICATION
     Route: 065

REACTIONS (1)
  - Intussusception [Recovered/Resolved]
